FAERS Safety Report 7519640-6 (Version None)
Quarter: 2011Q2

REPORT INFORMATION
  Report Type: 
  Country: None (occurrence: None)
  Receive Date: 20110602
  Receipt Date: 20110601
  Transmission Date: 20111010
  Serious: Yes (Hospitalization, Disabling, Other)
  Sender: FDA-Public Use
  Company Number: A0929877A

PATIENT
  Age: 53 Year
  Sex: Female

DRUGS (4)
  1. AVANDARYL [Concomitant]
  2. ALPRAZOLAM [Concomitant]
  3. PROMACTA [Suspect]
     Indication: IDIOPATHIC THROMBOCYTOPENIC PURPURA
     Dosage: 50MG PER DAY
     Route: 048
  4. LORAZEPAM [Concomitant]

REACTIONS (2)
  - DIVERTICULITIS [None]
  - GASTROENTERITIS [None]
